FAERS Safety Report 24705505 (Version 2)
Quarter: 2024Q4

REPORT INFORMATION
  Report Type: Spontaneous
  Country: NL (occurrence: NL)
  Receive Date: 20241206
  Receipt Date: 20241210
  Transmission Date: 20250115
  Serious: Yes (Other)
  Sender: BRISTOL-MYERS SQUIBB COMPANY
  Company Number: NL-IPSEN Group, Research and Development-2024-24119

PATIENT
  Age: 60 Year

DRUGS (2)
  1. NIVOLUMAB [Suspect]
     Active Substance: NIVOLUMAB
     Indication: Clear cell renal cell carcinoma
     Dosage: UNK
     Dates: start: 202310
  2. CABOMETYX [Suspect]
     Active Substance: CABOZANTINIB S-MALATE
     Indication: Clear cell renal cell carcinoma
     Dosage: 40 MG, QD
     Dates: start: 202309

REACTIONS (8)
  - Hepatic cancer [Unknown]
  - Immune-mediated hepatitis [Unknown]
  - Hepatitis viral [Unknown]
  - Hepatitis alcoholic [Unknown]
  - Sensitive skin [Recovered/Resolved]
  - Gingival pain [Unknown]
  - Oral pain [Recovered/Resolved]
  - Hepatic enzyme abnormal [Unknown]
